FAERS Safety Report 7229762-5 (Version None)
Quarter: 2011Q1

REPORT INFORMATION
  Report Type: 
  Country: None (occurrence: None)
  Receive Date: 20110117
  Receipt Date: 20110111
  Transmission Date: 20110831
  Serious: Yes (Other)
  Sender: FDA-Public Use
  Company Number: GB-PFIZER INC-2011007729

PATIENT
  Age: 34 Year
  Sex: Female

DRUGS (1)
  1. CHAMPIX [Suspect]
     Indication: SMOKING CESSATION THERAPY
     Dosage: 0.5 MG, 2X/DAY
     Route: 048
     Dates: start: 20101028, end: 20101106

REACTIONS (5)
  - APATHY [None]
  - PARANOIA [None]
  - DEPRESSED MOOD [None]
  - NAUSEA [None]
  - EMOTIONAL DISTRESS [None]
